FAERS Safety Report 7827832-1 (Version None)
Quarter: 2011Q4

REPORT INFORMATION
  Report Type: 
  Country: None (occurrence: None)
  Receive Date: 20111020
  Receipt Date: 20111007
  Transmission Date: 20120403
  Serious: Yes (Other)
  Sender: FDA-Public Use
  Company Number: GB-ELI_LILLY_AND_COMPANY-GB201108004194

PATIENT
  Sex: Female

DRUGS (8)
  1. FORTEO [Suspect]
     Dosage: 20 UG, QD
     Route: 058
     Dates: start: 20110701
  2. WARFARIN SODIUM [Concomitant]
  3. FORTEO [Suspect]
     Indication: OSTEOPOROSIS
     Dosage: 20 UG, QD
     Route: 058
     Dates: start: 20110401, end: 20110701
  4. POLYETHYLENE GLYCOL [Concomitant]
     Dosage: 5 MG, UNK
  5. TETRACYCLINE [Concomitant]
  6. VITAMIN D [Concomitant]
  7. IRBESARTAN [Concomitant]
     Dosage: 75 MG, UNK
  8. PRAVASTATIN [Concomitant]

REACTIONS (2)
  - SICKLE CELL ANAEMIA [None]
  - INFLAMMATORY MARKER INCREASED [None]
